FAERS Safety Report 14211396 (Version 1)
Quarter: 2017Q4

REPORT INFORMATION
  Report Type: Spontaneous
  Country: US (occurrence: US)
  Receive Date: 20171121
  Receipt Date: 20171121
  Transmission Date: 20180321
  Serious: Yes (Death)
  Sender: FDA-Public Use
  Company Number: US-SA-2017SA224439

PATIENT
  Age: 41 Year
  Sex: Female

DRUGS (2)
  1. DIPHENHYDRAMINE. [Suspect]
     Active Substance: DIPHENHYDRAMINE
     Route: 065
  2. IRON [Suspect]
     Active Substance: IRON
     Route: 065

REACTIONS (11)
  - Toxicity to various agents [Fatal]
  - Acute lung injury [Fatal]
  - Bradypnoea [Fatal]
  - Anion gap [Fatal]
  - Coma [Fatal]
  - Metabolic acidosis [Fatal]
  - Depressed level of consciousness [Fatal]
  - Tachycardia [Fatal]
  - Hepatotoxicity [Fatal]
  - Ventricular arrhythmia [Fatal]
  - Hypotension [Fatal]
